FAERS Safety Report 9892710 (Version 3)
Quarter: 2014Q1

REPORT INFORMATION
  Report Type: Spontaneous
  Country: US (occurrence: US)
  Receive Date: 20140212
  Receipt Date: 20140310
  Transmission Date: 20141002
  Serious: Yes (Hospitalization)
  Sender: FDA-Public Use
  Company Number: US-TMC-CABO-14003983

PATIENT
  Age: 47 Year
  Sex: Male
  Weight: 99.77 kg

DRUGS (1)
  1. COMETRIQ [Suspect]
     Indication: THYROID CANCER
     Dosage: 140 MG, QD
     Route: 048
     Dates: start: 20140108, end: 20140202

REACTIONS (3)
  - Oesophageal stenosis [Not Recovered/Not Resolved]
  - Pneumonia [Not Recovered/Not Resolved]
  - Upper respiratory fungal infection [Not Recovered/Not Resolved]
